APPROVED DRUG PRODUCT: TRIMEPRAZINE TARTRATE
Active Ingredient: TRIMEPRAZINE TARTRATE
Strength: EQ 2.5MG BASE/5ML
Dosage Form/Route: SYRUP;ORAL
Application: A088285 | Product #001
Applicant: MORTON GROVE PHARMACEUTICALS INC
Approved: Apr 11, 1985 | RLD: No | RS: No | Type: DISCN